FAERS Safety Report 6883480-1 (Version None)
Quarter: 2010Q3

REPORT INFORMATION
  Report Type: 
  Country: None (occurrence: None)
  Receive Date: 20100729
  Receipt Date: 20100721
  Transmission Date: 20110219
  Serious: Yes (Hospitalization)
  Sender: FDA-Public Use
  Company Number: FR-MERCK-1007FRA00064

PATIENT
  Age: 48 Year
  Sex: Male

DRUGS (4)
  1. PRIMAXIN [Suspect]
     Indication: ENTEROCOCCAL SEPSIS
     Route: 042
     Dates: start: 20080101, end: 20080128
  2. LINEZOLID [Suspect]
     Indication: ENTEROCOCCAL SEPSIS
     Route: 065
     Dates: start: 20080101, end: 20080128
  3. TOBRAMYCIN SULFATE [Suspect]
     Indication: ENTEROCOCCAL SEPSIS
     Route: 065
     Dates: start: 20080101, end: 20080206
  4. FLUCONAZOLE [Suspect]
     Indication: ENTEROCOCCAL SEPSIS
     Route: 065
     Dates: start: 20080101, end: 20080117

REACTIONS (2)
  - JAUNDICE CHOLESTATIC [None]
  - MULTI-ORGAN FAILURE [None]
